FAERS Safety Report 17152865 (Version 2)
Quarter: 2020Q1

REPORT INFORMATION
  Report Type: Spontaneous
  Country: IL (occurrence: IL)
  Receive Date: 20191213
  Receipt Date: 20200113
  Transmission Date: 20200409
  Serious: Yes (Hospitalization)
  Sender: FDA-Public Use
  Company Number: IL-ASTRAZENECA-2019SF80211

PATIENT
  Age: 231 Day
  Sex: Male

DRUGS (1)
  1. SYNAGIS [Suspect]
     Active Substance: PALIVIZUMAB
     Indication: ANTIVIRAL PROPHYLAXIS
     Route: 030
     Dates: start: 20191113, end: 20191113

REACTIONS (3)
  - Respiratory syncytial virus infection [Recovered/Resolved]
  - Respiratory syncytial virus bronchiolitis [Recovered/Resolved]
  - Adenovirus infection [Recovered/Resolved]

NARRATIVE: CASE EVENT DATE: 20191118
